FAERS Safety Report 9270302 (Version 1)
Quarter: 2013Q2

REPORT INFORMATION
  Report Type: Spontaneous
  Country: US (occurrence: US)
  Receive Date: 20130503
  Receipt Date: 20130503
  Transmission Date: 20140414
  Serious: No
  Sender: FDA-Public Use
  Company Number: US-009507513-1305USA000773

PATIENT
  Age: 27 Year
  Sex: Female
  Weight: 88.44 kg

DRUGS (1)
  1. IMPLANON [Suspect]
     Indication: CONTRACEPTION
     Dosage: 1 DF, EVERY 3 YEARS
     Route: 059
     Dates: start: 201005

REACTIONS (3)
  - Anaemia [Unknown]
  - Menstruation irregular [Unknown]
  - Implant site pain [Unknown]
